FAERS Safety Report 8983487 (Version 1)
Quarter: 2012Q4

REPORT INFORMATION
  Report Type: 
  Country: US (occurrence: US)
  Receive Date: 20121224
  Receipt Date: 20121224
  Transmission Date: 20130627
  Serious: No
  Sender: FDA-Public Use
  Company Number: US-BIOGENIDEC-2012BI061170

PATIENT
  Sex: Female

DRUGS (2)
  1. TYSABRI [Suspect]
     Indication: MULTIPLE SCLEROSIS
     Route: 042
     Dates: start: 20110725, end: 20110725
  2. BENADRYL [Concomitant]
     Indication: PROPHYLAXIS

REACTIONS (11)
  - Adverse reaction [Recovered/Resolved]
  - Facial pain [Unknown]
  - Migraine [Unknown]
  - Pain in extremity [Unknown]
  - Sensory disturbance [Unknown]
  - Feeling hot [Unknown]
  - Muscle tightness [Unknown]
  - Tremor [Recovered/Resolved]
  - Dyskinesia [Recovered/Resolved]
  - Muscle twitching [Recovered/Resolved]
  - Multiple sclerosis [Unknown]
